FAERS Safety Report 6093951-6 (Version None)
Quarter: 2009Q1

REPORT INFORMATION
  Report Type: 
  Country: None (occurrence: None)
  Receive Date: 20090226
  Receipt Date: 20090220
  Transmission Date: 20090719
  Serious: Yes (Hospitalization)
  Sender: FDA-Public Use
  Company Number: A0770313A

PATIENT
  Age: 43 Year
  Sex: Male
  Weight: 122.7 kg

DRUGS (13)
  1. AVANDIA [Suspect]
     Indication: DIABETES MELLITUS
     Dosage: 8MG PER DAY
     Route: 048
     Dates: start: 20051201, end: 20070201
  2. AVANDAMET [Suspect]
     Indication: DIABETES MELLITUS
     Route: 050
     Dates: start: 20051101, end: 20051201
  3. ACTOS [Concomitant]
  4. GLUCOPHAGE [Concomitant]
  5. METFORMIN [Concomitant]
  6. HYDROCHLOROTHIAZIDE [Concomitant]
     Dates: start: 20050101
  7. ENALAPRIL [Concomitant]
  8. CLONIDINE [Concomitant]
  9. FUROSEMIDE [Concomitant]
  10. BENICAR [Concomitant]
  11. NORVASC [Concomitant]
  12. ASPIRIN [Concomitant]
  13. NIFEDIPINE [Concomitant]

REACTIONS (2)
  - CARDIAC FAILURE CONGESTIVE [None]
  - CARDIOMEGALY [None]
